FAERS Safety Report 12768254 (Version 2)
Quarter: 2017Q1

REPORT INFORMATION
  Report Type: Report from Study
  Country: US (occurrence: US)
  Receive Date: 20160921
  Receipt Date: 20170331
  Transmission Date: 20170428
  Serious: Yes (Hospitalization)
  Sender: FDA-Public Use
  Company Number: US-B.I. PHARMACEUTICALS,INC./RIDGEFIELD-2016-BI-35056BP

PATIENT
  Age: 79 Year
  Sex: Male

DRUGS (4)
  1. OFEV [Suspect]
     Active Substance: NINTEDANIB
     Route: 048
     Dates: end: 20161130
  2. OFEV [Suspect]
     Active Substance: NINTEDANIB
     Route: 048
     Dates: start: 20161005, end: 20161128
  3. OFEV [Suspect]
     Active Substance: NINTEDANIB
     Route: 048
     Dates: start: 20160520, end: 20160715
  4. OFEV [Suspect]
     Active Substance: NINTEDANIB
     Indication: IDIOPATHIC PULMONARY FIBROSIS
     Route: 048
     Dates: start: 20160518

REACTIONS (22)
  - Decreased appetite [Recovered/Resolved]
  - Flatulence [Unknown]
  - Secretion discharge [Unknown]
  - Abdominal distension [Unknown]
  - Productive cough [Unknown]
  - Faecaloma [Unknown]
  - Weight decreased [Unknown]
  - Cough [Unknown]
  - Decreased appetite [Unknown]
  - Volvulus [Not Recovered/Not Resolved]
  - Intestinal obstruction [Not Recovered/Not Resolved]
  - Dyspnoea exertional [Unknown]
  - Constipation [Unknown]
  - Decreased appetite [Unknown]
  - Abdominal pain lower [Unknown]
  - Constipation [Not Recovered/Not Resolved]
  - Diarrhoea [Unknown]
  - Diarrhoea [Unknown]
  - Dyspnoea [Not Recovered/Not Resolved]
  - Failure to thrive [Recovered/Resolved]
  - Abdominal pain [Unknown]
  - Chills [Unknown]

NARRATIVE: CASE EVENT DATE: 20160710
